FAERS Safety Report 22053500 (Version 1)
Quarter: 2023Q1

REPORT INFORMATION
  Report Type: Spontaneous
  Country: SE (occurrence: SE)
  Receive Date: 20230302
  Receipt Date: 20230302
  Transmission Date: 20230417
  Serious: Yes (Hospitalization, Other)
  Sender: FDA-Public Use
  Company Number: SE-CELLTRION INC.-2023SE004082

PATIENT

DRUGS (3)
  1. INFLIXIMAB [Suspect]
     Active Substance: INFLIXIMAB
     Indication: Crohn^s disease
  2. ADALIMUMAB [Suspect]
     Active Substance: ADALIMUMAB
     Indication: Crohn^s disease
     Dosage: DOSAGE1: UNIT=NOT AVAILABLE
  3. USTEKINUMAB [Concomitant]
     Active Substance: USTEKINUMAB
     Indication: Crohn^s disease

REACTIONS (19)
  - Malnutrition [Unknown]
  - General physical health deterioration [Recovered/Resolved]
  - Bronchiectasis [Unknown]
  - Gastrointestinal disorder [Recovered/Resolved]
  - Salmonellosis [Unknown]
  - Pseudomonas infection [Unknown]
  - Clostridium difficile colitis [Unknown]
  - C-reactive protein increased [Unknown]
  - Neutrophil count increased [Unknown]
  - Gene mutation [Unknown]
  - Platelet count increased [Unknown]
  - White blood cell count increased [Unknown]
  - Bronchitis chronic [Unknown]
  - Mucocutaneous candidiasis [Recovered/Resolved]
  - Campylobacter infection [Unknown]
  - Lymphocyte count decreased [Unknown]
  - Varicella zoster virus infection [Unknown]
  - Staphylococcal skin infection [Unknown]
  - Lower respiratory tract infection [Unknown]
